FAERS Safety Report 6706525-8 (Version None)
Quarter: 2010Q2

REPORT INFORMATION
  Report Type: 
  Country: None (occurrence: None)
  Receive Date: 20100503
  Receipt Date: 20100427
  Transmission Date: 20101027
  Serious: Yes (Life-Threatening, Hospitalization)
  Sender: FDA-Public Use
  Company Number: IE-ASTRAZENECA-2010SE17471

PATIENT
  Age: 23115 Day
  Sex: Male

DRUGS (5)
  1. CRESTOR [Suspect]
     Indication: LIPIDS ABNORMAL
     Route: 048
     Dates: start: 20091013, end: 20100101
  2. NEXIUM [Concomitant]
     Indication: GASTRITIS
     Route: 048
  3. ASPIRIN [Concomitant]
     Indication: CORONARY ARTERY DISEASE
     Dosage: DAILY
  4. ZESTRIL [Concomitant]
  5. EZETROL [Concomitant]
     Indication: LIPIDS INCREASED

REACTIONS (2)
  - RENAL FAILURE ACUTE [None]
  - RHABDOMYOLYSIS [None]
